FAERS Safety Report 8845294 (Version 2)
Quarter: 2012Q4

REPORT INFORMATION
  Report Type: Report from Study
  Country: US (occurrence: US)
  Receive Date: 20121017
  Receipt Date: 20121024
  Transmission Date: 20130627
  Serious: Yes (Hospitalization)
  Sender: FDA-Public Use
  Company Number: US-VERTEX PHARMACEUTICAL INC.-2012-022522

PATIENT
  Age: 61 Year
  Sex: Male
  Weight: 126 kg

DRUGS (10)
  1. VX-950 [Suspect]
     Indication: HEPATITIS C
     Dosage: 750 mg, tid
     Route: 048
     Dates: start: 20120816, end: 20120923
  2. VX-950 [Suspect]
     Dosage: 750 mg, tid
     Route: 048
     Dates: start: 20121015
  3. COPEGUS [Suspect]
     Dosage: UNK
     Route: 048
     Dates: start: 20120816, end: 20120923
  4. COPEGUS [Suspect]
     Dosage: 200 mg, bid
     Route: 048
     Dates: start: 20121015
  5. PEGASYS [Suspect]
     Dosage: 180 ?g
     Route: 058
     Dates: start: 20120816, end: 20120923
  6. PEGASYS [Suspect]
     Dosage: 180 ?g
     Route: 058
     Dates: start: 20121015
  7. ACTOS [Concomitant]
     Indication: DIABETES MELLITUS
     Dosage: 30 mg, UNK
     Dates: start: 2005
  8. GLIPIZIDE [Concomitant]
     Indication: DIABETES MELLITUS
     Dosage: 5 mg, UNK
     Dates: start: 1997
  9. METFORMIN [Concomitant]
     Indication: DIABETES MELLITUS
     Dosage: 50 mg, UNK
     Dates: start: 2005
  10. LISINOPRIL [Concomitant]
     Indication: HYPERTENSION
     Dosage: 5 mg, UNK
     Dates: start: 2010

REACTIONS (1)
  - Cellulitis [Not Recovered/Not Resolved]
